FAERS Safety Report 8491968-5 (Version None)
Quarter: 2012Q3

REPORT INFORMATION
  Report Type: 
  Country: None (occurrence: None)
  Receive Date: 20120706
  Receipt Date: 20120628
  Transmission Date: 20120928
  Serious: Yes (Other)
  Sender: FDA-Public Use
  Company Number: US-SANOFI-AVENTIS-2012SA046464

PATIENT
  Age: 72 Year
  Sex: Male
  Weight: 61.4 kg

DRUGS (10)
  1. ACTOS [Concomitant]
  2. COENZYME Q10 [Concomitant]
  3. FISH OIL [Concomitant]
  4. COREG [Concomitant]
  5. ISOSORBIDE MONONITRATE [Concomitant]
  6. FOLIC ACID [Concomitant]
  7. ASPIRIN [Concomitant]
  8. PLAVIX [Suspect]
     Route: 048
     Dates: start: 19990101
  9. TRICOR [Concomitant]
  10. AZOR [Concomitant]

REACTIONS (2)
  - MYOCARDIAL INFARCTION [None]
  - ARTERIOSCLEROSIS [None]
